FAERS Safety Report 8155093-5 (Version None)
Quarter: 2012Q1

REPORT INFORMATION
  Report Type: 
  Country: None (occurrence: None)
  Receive Date: 20120221
  Receipt Date: 20120216
  Transmission Date: 20120608
  Serious: Yes (Death)
  Sender: FDA-Public Use
  Company Number: AU-B.I. PHARMACEUTICALS,INC./RIDGEFIELD-2011-AU-02527AU

PATIENT
  Sex: Male

DRUGS (7)
  1. ASPIRIN [Concomitant]
     Dosage: 100 MG
     Dates: start: 20090701
  2. NEXIUM [Concomitant]
  3. METFORMIN HCL [Concomitant]
     Dosage: NOT KNOWN
  4. PRADAXA [Suspect]
     Indication: CEREBROVASCULAR ACCIDENT PROPHYLAXIS
     Dosage: 220 MG
     Dates: start: 20110727
  5. BICOR [Concomitant]
     Dosage: 5 MG
     Dates: start: 20090701
  6. LIPITOR [Concomitant]
     Dosage: 80 MG
     Dates: start: 20090701
  7. PRADAXA [Suspect]
     Indication: ATRIAL FIBRILLATION

REACTIONS (1)
  - GASTROINTESTINAL CARCINOMA [None]
